FAERS Safety Report 4845171-8 (Version None)
Quarter: 2005Q4

REPORT INFORMATION
  Report Type: 
  Country: None (occurrence: None)
  Receive Date: 20051129
  Receipt Date: 20051116
  Transmission Date: 20060501
  Serious: Yes (Hospitalization)
  Sender: FDA-Public Use
  Company Number: 219597

PATIENT
  Sex: Male

DRUGS (1)
  1. RAPTIVA [Suspect]
     Indication: PSORIASIS
     Dates: start: 20050301

REACTIONS (5)
  - ACTINOMYCOSIS [None]
  - ASTHENIA [None]
  - COORDINATION ABNORMAL [None]
  - SHOULDER PAIN [None]
  - SUBDURAL EMPYEMA [None]
